FAERS Safety Report 4688443-2 (Version None)
Quarter: 2005Q2

REPORT INFORMATION
  Report Type: 
  Country: None (occurrence: None)
  Receive Date: 20050609
  Receipt Date: 20050531
  Transmission Date: 20051028
  Serious: Yes (Life-Threatening, Hospitalization)
  Sender: FDA-Public Use
  Company Number: 2005083850

PATIENT
  Age: 46 Year
  Sex: Male

DRUGS (2)
  1. ZOLOFT [Suspect]
     Indication: DEPRESSION
     Dosage: 100 MG (1 IN 1 D), ORAL
     Route: 048
     Dates: start: 20040501
  2. IBUPROFENE (IBUPROFEN) [Concomitant]

REACTIONS (7)
  - HAEMORRHAGE [None]
  - LOSS OF CONSCIOUSNESS [None]
  - MALAISE [None]
  - NECROSIS [None]
  - RECTAL HAEMORRHAGE [None]
  - TONSILLAR DISORDER [None]
  - VAGUS NERVE DISORDER [None]
